FAERS Safety Report 13212286 (Version 2)
Quarter: 2017Q1

REPORT INFORMATION
  Report Type: Spontaneous
  Country: US (occurrence: US)
  Receive Date: 20170210
  Receipt Date: 20170217
  Transmission Date: 20170428
  Serious: Yes (Other)
  Sender: FDA-Public Use
  Company Number: US-JNJFOC-20170205885

PATIENT
  Age: 59 Year
  Sex: Male
  Weight: 77.11 kg

DRUGS (20)
  1. ENALAPRIL MALEATE. [Concomitant]
     Active Substance: ENALAPRIL MALEATE
     Route: 048
     Dates: start: 20161107
  2. REMICADE [Suspect]
     Active Substance: INFLIXIMAB
     Indication: RHEUMATOID ARTHRITIS
     Route: 042
     Dates: start: 20161206
  3. ZYRTEC [Concomitant]
     Active Substance: CETIRIZINE HYDROCHLORIDE
     Route: 048
  4. ZOFRAN [Concomitant]
     Active Substance: ONDANSETRON HYDROCHLORIDE
     Route: 048
     Dates: start: 20161102
  5. METHOTREXATE SODIUM. [Suspect]
     Active Substance: METHOTREXATE SODIUM
     Indication: PRODUCT USED FOR UNKNOWN INDICATION
     Route: 048
  6. UMECLIDINIUM [Concomitant]
     Active Substance: UMECLIDINIUM BROMIDE
     Dosage: INHALE 1 PUFF (62 .5 MCG) BY INHALATION ROUTE ONCE DAILY AT THE SAME TIME EACH DAY FOR 30 DAYS
     Route: 055
     Dates: start: 20160912
  7. ATENOLOL. [Concomitant]
     Active Substance: ATENOLOL
     Route: 048
     Dates: start: 20161010
  8. KLOR-CON M20 [Concomitant]
     Active Substance: POTASSIUM CHLORIDE
     Dosage: 20 MEQ ORAL TABLET, ER PARTICLES/CRYSTALS ONE TABLET BY MOUTH ONCE DAILY WITH FOOD
     Route: 048
     Dates: start: 20161018
  9. HYDROCHLOROTHIAZIDE. [Concomitant]
     Active Substance: HYDROCHLOROTHIAZIDE
     Route: 048
     Dates: start: 20170103
  10. SULFASALAZINE. [Concomitant]
     Active Substance: SULFASALAZINE
     Dosage: TAKE TWO TABLETS BY MOUTH TWICE DAILY FOR 28 DAYS
     Route: 048
     Dates: start: 20161102
  11. FOLIC ACID. [Concomitant]
     Active Substance: FOLIC ACID
     Route: 048
  12. HYDROXYCHLOROQUINE [Concomitant]
     Active Substance: HYDROXYCHLOROQUINE
     Route: 048
  13. METHOTREXATE SODIUM. [Suspect]
     Active Substance: METHOTREXATE SODIUM
     Indication: PRODUCT USED FOR UNKNOWN INDICATION
     Route: 048
     Dates: start: 20151124
  14. REMICADE [Suspect]
     Active Substance: INFLIXIMAB
     Indication: RHEUMATOID ARTHRITIS
     Route: 042
  15. REMICADE [Suspect]
     Active Substance: INFLIXIMAB
     Indication: RHEUMATOID ARTHRITIS
     Route: 042
     Dates: start: 201603
  16. ALBUTEROL SULFATE. [Concomitant]
     Active Substance: ALBUTEROL SULFATE
     Dosage: IN HALE 3 MILLILETERS (1.25 MG) VIA NEBULIZER BY INHALATION ROUTE 3 TIMES PER DAY FOR 30 DAYS
     Route: 055
     Dates: start: 20151228
  17. ATORVASTATIN [Concomitant]
     Active Substance: ATORVASTATIN
     Route: 048
     Dates: start: 20161109
  18. PREDNISONE. [Concomitant]
     Active Substance: PREDNISONE
     Dosage: TAKE 3 TABLETS BY ORAL ROUTE DAILY FOR 30 DAYS
     Route: 048
  19. NIFEDIPINE. [Concomitant]
     Active Substance: NIFEDIPINE
     Dosage: TWO TABLET BY MOUTH ONCE DAILY
     Route: 048
  20. PREDNISONE. [Concomitant]
     Active Substance: PREDNISONE
     Dosage: TWO TABLET BY MOUTH ONCE DAILY
     Route: 048
     Dates: start: 20161102

REACTIONS (7)
  - Wheezing [Unknown]
  - Drug effect decreased [Unknown]
  - Pneumonitis [Unknown]
  - Contusion [Unknown]
  - Hepatic enzyme increased [Unknown]
  - Atelectasis [Unknown]
  - Rheumatoid arthritis [Recovering/Resolving]

NARRATIVE: CASE EVENT DATE: 20170202
